FAERS Safety Report 11030185 (Version 1)
Quarter: 2015Q2

REPORT INFORMATION
  Report Type: Spontaneous
  Country: US (occurrence: None)
  Receive Date: 20150413
  Receipt Date: 20150413
  Transmission Date: 20150821
  Serious: Yes (Disabling)
  Sender: FDA-Public Use
  Company Number: None

PATIENT
  Age: 57 Year
  Sex: Female
  Weight: 62.6 kg

DRUGS (1)
  1. PROLIA [Suspect]
     Active Substance: DENOSUMAB
     Indication: OSTEOPOROSIS
     Dosage: EVERY 3 MONTHS
     Route: 030
     Dates: start: 20150402

REACTIONS (7)
  - Sleep disorder [None]
  - Muscle rigidity [None]
  - Oedema [None]
  - Activities of daily living impaired [None]
  - Musculoskeletal pain [None]
  - Sciatica [None]
  - Abasia [None]

NARRATIVE: CASE EVENT DATE: 20150402
